FAERS Safety Report 8894748 (Version 1)
Quarter: 2012Q4

REPORT INFORMATION
  Report Type: 
  Country: US (occurrence: US)
  Receive Date: 20121108
  Receipt Date: 20121108
  Transmission Date: 20130627
  Serious: No
  Sender: FDA-Public Use
  Company Number: US-TEVA-368785USA

PATIENT
  Sex: Male
  Weight: 77.18 kg

DRUGS (3)
  1. PROAIR HFA [Suspect]
     Dosage: PRN
     Route: 055
  2. TOPROLOL [Concomitant]
  3. SPIRIVA [Concomitant]

REACTIONS (1)
  - Chest pain [Not Recovered/Not Resolved]
